FAERS Safety Report 9890507 (Version 1)
Quarter: 2014Q1

REPORT INFORMATION
  Report Type: Spontaneous
  Country: US (occurrence: None)
  Receive Date: 20140210
  Receipt Date: 20140210
  Transmission Date: 20141002
  Serious: Yes (Hospitalization)
  Sender: FDA-Public Use
  Company Number: None

PATIENT
  Age: 44 Year
  Sex: Male
  Weight: 74.6 kg

DRUGS (1)
  1. LAMOTRIGINE [Suspect]
     Indication: CONVULSION
     Dates: start: 20131028, end: 20131119

REACTIONS (4)
  - Rash [None]
  - Pyrexia [None]
  - Arthralgia [None]
  - Drug reaction with eosinophilia and systemic symptoms [None]
